FAERS Safety Report 5330589-X (Version None)
Quarter: 2007Q2

REPORT INFORMATION
  Report Type: 
  Country: None (occurrence: None)
  Receive Date: 20070516
  Receipt Date: 20070430
  Transmission Date: 20071010
  Serious: Yes (Disabling)
  Sender: FDA-Public Use
  Company Number: 2007EU000923

PATIENT
  Age: 71 Year
  Sex: Female
  Weight: 90 kg

DRUGS (8)
  1. VESICARE [Suspect]
     Indication: MICTURITION URGENCY
     Dosage: 5 MG, UID/QD, ORAL
     Route: 048
     Dates: start: 20070412, end: 20070413
  2. ALENDRONIC ACID (ALENDRONIC ACID) [Concomitant]
  3. ATENOLOL [Concomitant]
  4. BENDROFLUMETHIAZIDE (BENDROFLUMETHIAZIDE) [Concomitant]
  5. FELODIPINE [Concomitant]
  6. PREDNISOLONE [Concomitant]
  7. RABEPRAZOLE SODIUM [Concomitant]
  8. SIMVASTATIN [Concomitant]

REACTIONS (2)
  - MUSCULAR WEAKNESS [None]
  - VISION BLURRED [None]
